FAERS Safety Report 9691013 (Version 1)
Quarter: 2013Q4

REPORT INFORMATION
  Report Type: Spontaneous
  Country: CA (occurrence: CA)
  Receive Date: 20131115
  Receipt Date: 20131115
  Transmission Date: 20140711
  Serious: Yes (Other)
  Sender: FDA-Public Use
  Company Number: CA-PFIZER INC-2013322211

PATIENT
  Sex: Female

DRUGS (2)
  1. CHAMPIX [Suspect]
     Dosage: UNK
     Dates: start: 201310
  2. CHAMPIX [Suspect]
     Dosage: HALF DOSE
     Dates: start: 201311

REACTIONS (3)
  - Bipolar disorder [Unknown]
  - Insomnia [Unknown]
  - Nightmare [Unknown]
